FAERS Safety Report 18681652 (Version 3)
Quarter: 2021Q1

REPORT INFORMATION
  Report Type: Spontaneous
  Country: JP (occurrence: JP)
  Receive Date: 20201230
  Receipt Date: 20210303
  Transmission Date: 20210419
  Serious: Yes (Hospitalization)
  Sender: FDA-Public Use
  Company Number: NVSJ2020JP014087

PATIENT
  Age: 68 Year
  Sex: Male
  Weight: 65 kg

DRUGS (9)
  1. HUMULIN R [Concomitant]
     Active Substance: INSULIN HUMAN
     Dosage: 3 DF
     Route: 058
  2. EQUMET [Suspect]
     Active Substance: METFORMIN HYDROCHLORIDE\VILDAGLIPTIN
     Indication: TYPE 2 DIABETES MELLITUS
     Dosage: 1 DF, BID
     Route: 048
     Dates: start: 20190626, end: 20201203
  3. ROSUVASTATIN. [Suspect]
     Active Substance: ROSUVASTATIN
     Indication: HYPERCHOLESTEROLAEMIA
     Dosage: 2.5 MG, QD
     Route: 048
  4. HUMULIN R [Concomitant]
     Active Substance: INSULIN HUMAN
     Indication: PRODUCT USED FOR UNKNOWN INDICATION
     Dosage: 9 DF
     Route: 058
     Dates: start: 20201203
  5. HUMULIN R [Concomitant]
     Active Substance: INSULIN HUMAN
     Dosage: 11 DF
     Route: 058
  6. HUMULIN R [Concomitant]
     Active Substance: INSULIN HUMAN
     Dosage: 7 DF
     Route: 058
     Dates: start: 20201203
  7. HUMULIN R [Concomitant]
     Active Substance: INSULIN HUMAN
     Dosage: 10 DF
     Route: 058
  8. HUMULIN R [Concomitant]
     Active Substance: INSULIN HUMAN
     Dosage: 5 DF
     Route: 058
  9. HUMULIN R [Concomitant]
     Active Substance: INSULIN HUMAN
     Dosage: 13 DF
     Route: 058

REACTIONS (5)
  - Amylase increased [Recovering/Resolving]
  - Renal cyst [Not Recovered/Not Resolved]
  - Diabetes mellitus inadequate control [Recovering/Resolving]
  - Pancreatitis acute [Recovered/Resolved]
  - Lipase increased [Recovering/Resolving]

NARRATIVE: CASE EVENT DATE: 202011
